FAERS Safety Report 7946672-6 (Version None)
Quarter: 2011Q4

REPORT INFORMATION
  Report Type: 
  Country: None (occurrence: None)
  Receive Date: 20111129
  Receipt Date: 20111121
  Transmission Date: 20120403
  Serious: Yes (Other)
  Sender: FDA-Public Use
  Company Number: US-ABBOTT-11P-163-0877100-00

PATIENT
  Sex: Male
  Weight: 80.812 kg

DRUGS (4)
  1. PRAVASTATIN [Concomitant]
     Indication: BLOOD CHOLESTEROL INCREASED
  2. UNKNOWN MEDICATION [Concomitant]
     Indication: HYPERTENSION
  3. TRICOR [Concomitant]
     Indication: BLOOD CHOLESTEROL INCREASED
  4. NIASPAN [Suspect]
     Indication: BLOOD TRIGLYCERIDES INCREASED
     Dates: start: 20101101

REACTIONS (6)
  - PAIN [None]
  - RENAL DISORDER [None]
  - VOMITING [None]
  - GLOMERULAR FILTRATION RATE DECREASED [None]
  - NEPHROLITHIASIS [None]
  - DYSGEUSIA [None]
